FAERS Safety Report 6604849-6 (Version None)
Quarter: 2010Q1

REPORT INFORMATION
  Report Type: 
  Country: None (occurrence: None)
  Receive Date: 20100226
  Receipt Date: 20100218
  Transmission Date: 20100710
  Serious: Yes (Death, Other)
  Sender: FDA-Public Use
  Company Number: US-BAXTER-2009BH018391

PATIENT
  Age: 59 Year
  Sex: Female

DRUGS (13)
  1. HEPARIN SODIUM INJECTION [Suspect]
     Indication: THROMBOSIS PROPHYLAXIS
     Route: 065
     Dates: start: 20071112
  2. HEPARIN SODIUM INJECTION [Suspect]
     Indication: VASCULAR OPERATION
     Route: 065
     Dates: start: 20071112
  3. HEPARIN SODIUM INJECTION [Suspect]
     Indication: INTRAVENOUS CATHETER MANAGEMENT
     Route: 065
     Dates: start: 20071112
  4. HEPARIN SODIUM INJECTION [Suspect]
     Route: 065
     Dates: start: 20071124, end: 20071130
  5. HEPARIN SODIUM INJECTION [Suspect]
     Route: 065
     Dates: start: 20071124, end: 20071130
  6. HEPARIN SODIUM INJECTION [Suspect]
     Route: 065
     Dates: start: 20071124, end: 20071130
  7. HEP-LOCK [Suspect]
     Indication: THROMBOSIS PROPHYLAXIS
     Route: 065
     Dates: start: 20071112
  8. HEP-LOCK [Suspect]
     Indication: VASCULAR OPERATION
     Route: 065
     Dates: start: 20071112
  9. HEP-LOCK [Suspect]
     Indication: INTRAVENOUS CATHETER MANAGEMENT
     Route: 065
     Dates: start: 20071112
  10. HEP-LOCK [Suspect]
     Route: 065
     Dates: start: 20071124, end: 20071130
  11. HEP-LOCK [Suspect]
     Route: 065
     Dates: start: 20071124, end: 20071130
  12. HEP-LOCK [Suspect]
     Route: 065
     Dates: start: 20071124, end: 20071130
  13. ALBUTEROL [Concomitant]
     Indication: DRUG USE FOR UNKNOWN INDICATION
     Route: 065

REACTIONS (7)
  - CHRONIC OBSTRUCTIVE PULMONARY DISEASE [None]
  - HAEMORRHAGE [None]
  - HYPOTENSION [None]
  - MENTAL STATUS CHANGES [None]
  - NAUSEA [None]
  - RENAL FAILURE [None]
  - UNRESPONSIVE TO STIMULI [None]
